FAERS Safety Report 8895688 (Version 1)
Quarter: 2012Q4

REPORT INFORMATION
  Report Type: 
  Country: DK (occurrence: GB)
  Receive Date: 20121108
  Receipt Date: 20121108
  Transmission Date: 20130627
  Serious: Yes (Other)
  Sender: FDA-Public Use
  Company Number: GB-FRI-1000040168

PATIENT
  Sex: Male

DRUGS (3)
  1. MEMANTINE [Suspect]
     Indication: DEMENTIA
     Dosage: 20 mg
     Route: 048
  2. CITALOPRAM [Suspect]
     Dosage: 20 mg
     Route: 048
  3. MEMANTINE ORAL SOLUTION [Concomitant]
     Indication: DEMENTIA
     Dosage: 20 mg
     Route: 048

REACTIONS (3)
  - Mental impairment [Recovering/Resolving]
  - Abnormal behaviour [Recovering/Resolving]
  - Wrong technique in drug usage process [Recovering/Resolving]
